FAERS Safety Report 9988825 (Version 1)
Quarter: 2013Q4

REPORT INFORMATION
  Report Type: Spontaneous
  Country: IT (occurrence: None)
  Receive Date: 20131021
  Receipt Date: 20131021
  Transmission Date: 20140711
  Serious: Yes (Life-Threatening)
  Sender: FDA-Public Use
  Company Number: IT-MDCO-13-00004

PATIENT
  Age: 53 Year
  Sex: Male

DRUGS (3)
  1. ANGIOX [Suspect]
     Indication: CORONARY ARTERY DISEASE
     Route: 042
     Dates: start: 20121108, end: 20121108
  2. VISIPAQUE [Suspect]
     Indication: ARTERIOGRAM CORONARY
     Route: 042
     Dates: start: 20121108, end: 20121108
  3. EFIENT [Suspect]
     Indication: CORONARY ARTERY DISEASE
     Route: 048
     Dates: start: 20121108, end: 201211

REACTIONS (6)
  - Rash [None]
  - Nasal oedema [None]
  - Eyelid disorder [None]
  - Oedema mouth [None]
  - Dyspnoea [None]
  - Flushing [None]
